FAERS Safety Report 10717895 (Version 4)
Quarter: 2015Q2

REPORT INFORMATION
  Report Type: Spontaneous
  Country: US (occurrence: US)
  Receive Date: 20150116
  Receipt Date: 20150619
  Transmission Date: 20150821
  Serious: Yes (Hospitalization, Disabling, Other)
  Sender: FDA-Public Use
  Company Number: US-009507513-1104USA03263

PATIENT
  Sex: Female

DRUGS (5)
  1. FOSAMAX [Suspect]
     Active Substance: ALENDRONATE SODIUM
     Indication: BONE DENSITY DECREASED
     Dosage: UNK
     Route: 048
     Dates: start: 200112, end: 200904
  2. FOSAMAX [Suspect]
     Active Substance: ALENDRONATE SODIUM
     Dosage: 70 MG, QW
     Route: 048
     Dates: start: 20030219, end: 20080126
  3. CENTRUM SILVER [Concomitant]
     Active Substance: VITAMINS
     Dosage: 1 PILL DAILY
     Dates: start: 20011121
  4. FOSAMAX [Suspect]
     Active Substance: ALENDRONATE SODIUM
     Indication: BONE DENSITY DECREASED
     Dosage: 70 MG, QD
     Route: 048
     Dates: start: 20011204, end: 20021224
  5. ALENDRONATE SODIUM. [Suspect]
     Active Substance: ALENDRONATE SODIUM
     Indication: BONE DENSITY DECREASED
     Dosage: 70 MG, QW
     Route: 048
     Dates: start: 20080220, end: 20090416

REACTIONS (18)
  - Blood iron decreased [Unknown]
  - Glaucoma [Unknown]
  - Back pain [Not Recovered/Not Resolved]
  - Intramedullary rod insertion [Unknown]
  - Chronic obstructive pulmonary disease [Not Recovered/Not Resolved]
  - Inappropriate schedule of drug administration [Unknown]
  - Appendicectomy [Unknown]
  - Fracture nonunion [Unknown]
  - Osteoarthritis [Unknown]
  - Muscle spasms [Unknown]
  - Thrombosis [Unknown]
  - Cataract operation [Unknown]
  - Coronary arterial stent insertion [Unknown]
  - Depression [Unknown]
  - Hysterectomy [Unknown]
  - Femur fracture [Unknown]
  - Bone disorder [Not Recovered/Not Resolved]
  - Cardiac monitoring [Unknown]

NARRATIVE: CASE EVENT DATE: 20011204
